FAERS Safety Report 23193075 (Version 2)
Quarter: 2023Q4

REPORT INFORMATION
  Report Type: Report from Study
  Country: US (occurrence: US)
  Receive Date: 20231116
  Receipt Date: 20231226
  Transmission Date: 20240110
  Serious: Yes (Hospitalization, Other)
  Sender: FDA-Public Use
  Company Number: US-ALXN-A202310280AA

PATIENT
  Sex: Male

DRUGS (2)
  1. ULTOMIRIS [Suspect]
     Active Substance: RAVULIZUMAB-CWVZ
     Indication: Myasthenia gravis
     Dosage: UNK
     Route: 065
  2. ULTOMIRIS [Suspect]
     Active Substance: RAVULIZUMAB-CWVZ
     Dosage: UNK
     Route: 042

REACTIONS (8)
  - Myasthenia gravis [Recovered/Resolved]
  - Therapeutic response shortened [Unknown]
  - Upper respiratory tract congestion [Unknown]
  - Sinus congestion [Unknown]
  - Dizziness [Unknown]
  - Headache [Recovering/Resolving]
  - Disorientation [Unknown]
  - Depression [Unknown]
